FAERS Safety Report 8338338-8 (Version None)
Quarter: 2012Q2

REPORT INFORMATION
  Report Type: 
  Country: None (occurrence: None)
  Receive Date: 20120504
  Receipt Date: 20120430
  Transmission Date: 20120825
  Serious: Yes (Other)
  Sender: FDA-Public Use
  Company Number: US-PFIZER INC-2012106361

PATIENT
  Sex: Female
  Weight: 72.562 kg

DRUGS (2)
  1. EFFEXOR XR [Suspect]
     Dosage: 75 MG, DAILY
     Route: 048
     Dates: end: 20120426
  2. VENLAFAXINE HYDROCHLORIDE [Suspect]
     Dosage: 75 MG, DAILY
     Dates: start: 20120401, end: 20120426

REACTIONS (8)
  - HEADACHE [None]
  - DIZZINESS [None]
  - FEELING ABNORMAL [None]
  - VISION BLURRED [None]
  - NAUSEA [None]
  - DRUG DEPENDENCE [None]
  - WITHDRAWAL SYNDROME [None]
  - COLD SWEAT [None]
